FAERS Safety Report 5492795-3 (Version None)
Quarter: 2007Q4

REPORT INFORMATION
  Report Type: 
  Country: None (occurrence: None)
  Receive Date: 20071019
  Receipt Date: 20071005
  Transmission Date: 20080405
  Serious: Yes (Other)
  Sender: FDA-Public Use
  Company Number: 2007001866

PATIENT
  Age: 55 Year
  Sex: Female

DRUGS (2)
  1. TARCEVA [Suspect]
     Indication: LUNG CANCER METASTATIC
     Dosage: (100 MG, QD), ORAL
     Route: 048
     Dates: start: 20061115
  2. BEVACIZUMAB (INJECTION FOR INFUSION) [Suspect]
     Indication: LUNG CANCER METASTATIC
     Dosage: (5 MG), INTRAVENOUS
     Route: 042
     Dates: start: 20061115

REACTIONS (3)
  - COLITIS EROSIVE [None]
  - COLITIS ULCERATIVE [None]
  - ILEITIS [None]
